FAERS Safety Report 7499982-3 (Version None)
Quarter: 2011Q2

REPORT INFORMATION
  Report Type: 
  Country: None (occurrence: None)
  Receive Date: 20110517
  Receipt Date: 20110504
  Transmission Date: 20111010
  Serious: Yes (Other)
  Sender: FDA-Public Use
  Company Number: LTI2011A00098

PATIENT
  Age: 62 Year
  Sex: Male

DRUGS (6)
  1. PERINDOPRIL ERBUMINE [Concomitant]
  2. CRESTOR [Concomitant]
  3. AMLODIPINE [Concomitant]
  4. ACTOS [Suspect]
     Indication: TYPE 2 DIABETES MELLITUS
     Dosage: 15 MG (15 MG, 1 IN 1 D), ORAL
     Route: 048
     Dates: start: 20110123, end: 20110329
  5. DIAMICRON (GLICLAZIDE) [Concomitant]
  6. BIPRETERAX (INDAPAMIDE) [Concomitant]

REACTIONS (2)
  - BRONCHITIS [None]
  - DRUG INEFFECTIVE [None]
